FAERS Safety Report 12597067 (Version 6)
Quarter: 2018Q2

REPORT INFORMATION
  Report Type: Report from Study
  Country: GT (occurrence: GT)
  Receive Date: 20160727
  Receipt Date: 20180413
  Transmission Date: 20180711
  Serious: Yes (Hospitalization)
  Sender: FDA-Public Use
  Company Number: PHHY2015GT098903

PATIENT
  Age: 55 Year
  Sex: Female

DRUGS (2)
  1. GILENYA [Suspect]
     Active Substance: FINGOLIMOD HYDROCHLORIDE
     Indication: MULTIPLE SCLEROSIS
     Dosage: 0.5 MG, UNK
     Route: 065
  2. GILENYA [Suspect]
     Active Substance: FINGOLIMOD HYDROCHLORIDE
     Dosage: 0.5 MG, UNK
     Route: 065
     Dates: start: 2013

REACTIONS (23)
  - Seizure [Unknown]
  - Malaise [Unknown]
  - Thermal burn [Unknown]
  - Movement disorder [Unknown]
  - Drug interaction [Unknown]
  - Asthenia [Unknown]
  - Musculoskeletal stiffness [Unknown]
  - Gait inability [Not Recovered/Not Resolved]
  - Sleep disorder [Unknown]
  - Tremor [Not Recovered/Not Resolved]
  - Urinary incontinence [Unknown]
  - Hypoaesthesia [Not Recovered/Not Resolved]
  - Malnutrition [Unknown]
  - Sensory loss [Unknown]
  - Stress [Unknown]
  - Alopecia [Recovered/Resolved]
  - Blood pressure decreased [Unknown]
  - Multiple sclerosis relapse [Unknown]
  - Motor dysfunction [Unknown]
  - Dyspnoea [Unknown]
  - Blood sodium decreased [Unknown]
  - Musculoskeletal pain [Unknown]
  - Blood calcium decreased [Unknown]

NARRATIVE: CASE EVENT DATE: 2015
